FAERS Safety Report 10153706 (Version 1)
Quarter: 2014Q2

REPORT INFORMATION
  Report Type: Spontaneous
  Country: IE (occurrence: IE)
  Receive Date: 20140506
  Receipt Date: 20140506
  Transmission Date: 20141212
  Serious: Yes (Other)
  Sender: FDA-Public Use
  Company Number: IE-ROCHE-1394544

PATIENT
  Age: 0 Day
  Sex: Male

DRUGS (1)
  1. TAMIFLU [Suspect]
     Indication: INFLUENZA
     Route: 048
     Dates: start: 20140320, end: 20140321

REACTIONS (2)
  - Convulsion [Recovered/Resolved]
  - Confusional state [Recovered/Resolved]
